FAERS Safety Report 24023673 (Version 2)
Quarter: 2024Q3

REPORT INFORMATION
  Report Type: Report from Study
  Country: IT (occurrence: IT)
  Receive Date: 20240627
  Receipt Date: 20240710
  Transmission Date: 20241016
  Serious: No
  Sender: ROCHE
  Company Number: IT-ROCHE-3447744

PATIENT
  Age: 52 Year
  Sex: Male
  Weight: 80.0 kg

DRUGS (4)
  1. ALECTINIB [Suspect]
     Active Substance: ALECTINIB
     Indication: Non-small cell lung cancer metastatic
     Route: 048
     Dates: start: 20230131
  2. PREDNISONE [Concomitant]
     Active Substance: PREDNISONE
     Indication: Pain
     Route: 048
     Dates: start: 20231006, end: 20231015
  3. BRIGATINIB [Concomitant]
     Active Substance: BRIGATINIB
     Dates: start: 20231006
  4. ROSUVASTATINE/EZETIMIBE [Concomitant]
     Route: 048
     Dates: start: 20240104

REACTIONS (1)
  - Transaminases increased [Recovering/Resolving]

NARRATIVE: CASE EVENT DATE: 20230909
